FAERS Safety Report 10228895 (Version 1)
Quarter: 2014Q2

REPORT INFORMATION
  Report Type: Spontaneous
  Country: US (occurrence: US)
  Receive Date: 20140610
  Receipt Date: 20140610
  Transmission Date: 20141212
  Serious: Yes (Hospitalization, Other)
  Sender: FDA-Public Use
  Company Number: US-ASTRAZENECA-2014SE38899

PATIENT
  Age: 81 Year
  Sex: Female
  Weight: 90.3 kg

DRUGS (15)
  1. SYMBICORT [Suspect]
     Indication: CHRONIC OBSTRUCTIVE PULMONARY DISEASE
     Dosage: 80/4.5, 2 PUFFS BID
     Route: 055
     Dates: start: 2012
  2. LISINOPRIL [Suspect]
     Route: 048
     Dates: start: 2013
  3. OMEPRAZOLE [Suspect]
     Indication: HIATUS HERNIA
     Route: 048
     Dates: start: 2013
  4. SIMVASTATIN [Concomitant]
     Indication: HYPERTENSION
     Route: 048
     Dates: start: 2013
  5. METOPROLOL TARTRATE [Concomitant]
     Route: 048
     Dates: start: 2013
  6. LYRICA [Concomitant]
     Indication: NEUROPATHY PERIPHERAL
     Route: 048
     Dates: start: 2013, end: 201405
  7. ISOSORBIDE [Concomitant]
     Route: 048
     Dates: start: 2013
  8. FUROSEMIDE [Concomitant]
     Indication: FLUID RETENTION
     Route: 048
     Dates: start: 2013
  9. FOLBIC [Concomitant]
     Indication: VITAMIN SUPPLEMENTATION
     Dosage: UNKNOWN DAILY
     Route: 048
     Dates: start: 2013
  10. METOLACONE [Concomitant]
     Indication: FLUID RETENTION
     Route: 048
     Dates: start: 201312
  11. POTASSIUM [Concomitant]
     Indication: ELECTROLYTE SUBSTITUTION THERAPY
     Route: 048
     Dates: start: 2013
  12. I-CAPS [Concomitant]
     Indication: VITAMIN SUPPLEMENTATION
     Dosage: UNKNOWN DAILY
     Route: 048
     Dates: start: 2013
  13. SYSTANE ULTRA EYE DROPS [Concomitant]
     Indication: BLINDNESS UNILATERAL
     Dosage: UNKNOWN TID
     Route: 050
     Dates: start: 2013
  14. PRADAXA [Concomitant]
     Indication: ANTICOAGULANT THERAPY
     Route: 048
     Dates: start: 2013
  15. NITRO [Concomitant]
     Indication: CHEST PAIN
     Dosage: 4MG 1-150 PRN
     Route: 050
     Dates: start: 2004

REACTIONS (14)
  - Dyspnoea [Not Recovered/Not Resolved]
  - Pericardial effusion [Not Recovered/Not Resolved]
  - Malaise [Unknown]
  - Venous occlusion [Unknown]
  - Procedural complication [Unknown]
  - Gastric disorder [Unknown]
  - Postoperative wound infection [Unknown]
  - Weight decreased [Unknown]
  - Memory impairment [Unknown]
  - Speech disorder [Not Recovered/Not Resolved]
  - Gait disturbance [Not Recovered/Not Resolved]
  - Tremor [Not Recovered/Not Resolved]
  - Off label use [Unknown]
  - Intentional product misuse [Unknown]
